FAERS Safety Report 6449219-9 (Version None)
Quarter: 2009Q4

REPORT INFORMATION
  Report Type: 
  Country: None (occurrence: None)
  Receive Date: 20091120
  Receipt Date: 20091112
  Transmission Date: 20100525
  Serious: Yes (Hospitalization)
  Sender: FDA-Public Use
  Company Number: FR-BRISTOL-MYERS SQUIBB COMPANY-14680672

PATIENT
  Age: 62 Year
  Sex: Female

DRUGS (4)
  1. IRBESARTAN AND HYDROCHLOROTHIAZIDE [Suspect]
     Dosage: 1DF-1TABS.ONE TABS DAILY
     Route: 048
     Dates: start: 20080101, end: 20090527
  2. LIPANTHYL [Suspect]
     Dosage: FORM-TABS.ONE TABS DAILY
     Route: 048
     Dates: start: 20090301, end: 20090527
  3. SELOKEN [Suspect]
     Dosage: ONE TABS DAILY; INTERRUPTED ON 27MAY2009 THEN REINTRODUCED AND THEN STOPPED
     Route: 048
     Dates: start: 19990101, end: 20090101
  4. PLAVIX [Suspect]
     Dosage: ONE TABS DAILY; INTERRUPTED ON 27MAY2009 THEN REINTRODUCED AND THEN STOPPED
     Route: 048
     Dates: start: 20060101, end: 20090101

REACTIONS (2)
  - METABOLIC ACIDOSIS [None]
  - PANCREATITIS HAEMORRHAGIC [None]
